FAERS Safety Report 26041468 (Version 2)
Quarter: 2025Q4

REPORT INFORMATION
  Report Type: Spontaneous
  Country: EU (occurrence: EU)
  Receive Date: 20251113
  Receipt Date: 20251209
  Transmission Date: 20260118
  Serious: Yes (Hospitalization, Other)
  Sender: ARGENX BVBA
  Company Number: EU-ARGENX-2025-ARGX-DE015628

PATIENT

DRUGS (8)
  1. AZATHIOPRINE [Suspect]
     Active Substance: AZATHIOPRINE
     Indication: Product used for unknown indication
     Dosage: UNK
     Route: 065
     Dates: end: 20250718
  2. HUMAN IMMUNOGLOBULIN G [Suspect]
     Active Substance: HUMAN IMMUNOGLOBULIN G
     Indication: Product used for unknown indication
     Dosage: 145 G
     Route: 042
     Dates: start: 20250730, end: 20250803
  3. VYVGART [Suspect]
     Active Substance: EFGARTIGIMOD ALFA-FCAB
     Indication: Myasthenia gravis
     Dosage: 800 MG
     Route: 042
     Dates: start: 20250630, end: 20250630
  4. VYVGART [Suspect]
     Active Substance: EFGARTIGIMOD ALFA-FCAB
     Indication: Myasthenia gravis
     Dosage: 1000 MG
     Route: 058
     Dates: start: 20250707, end: 20250707
  5. VYVGART [Suspect]
     Active Substance: EFGARTIGIMOD ALFA-FCAB
     Dosage: 1000 MG, (CYCLE 2)
     Route: 058
     Dates: start: 20250929, end: 20251020
  6. VYVGART [Suspect]
     Active Substance: EFGARTIGIMOD ALFA-FCAB
     Dosage: 1000 MG, RESUMED (CYCLE 1)
     Route: 058
     Dates: start: 20250811, end: 20250901
  7. MESTINON [Concomitant]
     Active Substance: PYRIDOSTIGMINE BROMIDE
     Indication: Product used for unknown indication
     Dosage: 3 X 120 MG + 180 MG (EXTENDED RELEASE)
     Route: 065
  8. PREDNISOLONE [Concomitant]
     Active Substance: PREDNISOLONE
     Indication: Product used for unknown indication
     Dosage: 7.5 MG, DAILY
     Route: 065

REACTIONS (5)
  - Papilloedema [Unknown]
  - Endocarditis [Unknown]
  - Cyanopsia [Unknown]
  - Transaminases increased [Unknown]
  - Therapy change [Unknown]
